FAERS Safety Report 23652987 (Version 1)
Quarter: 2024Q1

REPORT INFORMATION
  Report Type: Other
  Country: US (occurrence: None)
  Receive Date: 20240320
  Receipt Date: 20240320
  Transmission Date: 20240410
  Serious: No
  Sender: FDA-Public Use
  Company Number: US-ROCHE-2695370

PATIENT
  Age: 38 Year
  Sex: Female
  Weight: 89.438 kg

DRUGS (12)
  1. OCREVUS [Suspect]
     Active Substance: OCRELIZUMAB
     Indication: Relapsing-remitting multiple sclerosis
     Dosage: ONGOING: YES
     Route: 042
     Dates: start: 20201009
  2. OCREVUS [Suspect]
     Active Substance: OCRELIZUMAB
     Route: 042
  3. KLONOPIN [Suspect]
     Active Substance: CLONAZEPAM
     Indication: Anxiety
     Route: 065
     Dates: start: 20200831
  4. KLONOPIN [Suspect]
     Active Substance: CLONAZEPAM
     Route: 065
     Dates: start: 2023
  5. LISINOPRIL [Concomitant]
     Active Substance: LISINOPRIL
  6. BACLOFEN [Concomitant]
     Active Substance: BACLOFEN
  7. ZOLOFT [Concomitant]
     Active Substance: SERTRALINE HYDROCHLORIDE
  8. METOPROLOL [Concomitant]
     Active Substance: METOPROLOL
  9. VITAMIN D3 [Concomitant]
     Active Substance: CHOLECALCIFEROL
  10. BENADRYL [Concomitant]
     Active Substance: DIPHENHYDRAMINE HYDROCHLORIDE
  11. BOTOX [Concomitant]
     Active Substance: ONABOTULINUMTOXINA
  12. ALBUTEROL [Concomitant]
     Active Substance: ALBUTEROL

REACTIONS (18)
  - Pharyngeal swelling [Recovered/Resolved]
  - Sneezing [Recovered/Resolved]
  - Pruritus [Recovered/Resolved]
  - Pain [Not Recovered/Not Resolved]
  - Nausea [Not Recovered/Not Resolved]
  - Retching [Unknown]
  - Vomiting [Not Recovered/Not Resolved]
  - Nasal congestion [Recovered/Resolved]
  - Fatigue [Recovered/Resolved]
  - Oropharyngeal pain [Recovered/Resolved]
  - COVID-19 [Recovered/Resolved]
  - Poor quality sleep [Not Recovered/Not Resolved]
  - Respiratory syncytial virus test positive [Recovered/Resolved]
  - Illness [Recovered/Resolved]
  - Pharyngeal disorder [Recovered/Resolved]
  - Fungal infection [Recovering/Resolving]
  - Dry throat [Recovered/Resolved]
  - Cough [Not Recovered/Not Resolved]

NARRATIVE: CASE EVENT DATE: 20201009
